FAERS Safety Report 24263936 (Version 1)
Quarter: 2024Q3

REPORT INFORMATION
  Report Type: Spontaneous
  Country: US (occurrence: US)
  Receive Date: 20240829
  Receipt Date: 20240829
  Transmission Date: 20241016
  Serious: No
  Sender: TAKEDA
  Company Number: US-TAKEDA-2024TUS084805

PATIENT
  Sex: Female
  Weight: 67 kg

DRUGS (4)
  1. VYVANSE [Suspect]
     Active Substance: LISDEXAMFETAMINE DIMESYLATE
     Indication: Attention deficit hyperactivity disorder
     Dosage: 40 MILLIGRAM, QD
     Route: 065
     Dates: start: 202010, end: 202405
  2. VYVANSE [Suspect]
     Active Substance: LISDEXAMFETAMINE DIMESYLATE
     Indication: Obsessive-compulsive disorder
  3. LISDEXAMFETAMINE DIMESYLATE [Suspect]
     Active Substance: LISDEXAMFETAMINE DIMESYLATE
     Indication: Attention deficit hyperactivity disorder
     Dosage: UNK
     Route: 065
  4. LISDEXAMFETAMINE DIMESYLATE [Suspect]
     Active Substance: LISDEXAMFETAMINE DIMESYLATE
     Indication: Obsessive-compulsive disorder

REACTIONS (6)
  - Off label use [Unknown]
  - Insurance issue [Unknown]
  - Inability to afford medication [Unknown]
  - Product availability issue [Unknown]
  - Menopause [Unknown]
  - Product use issue [Unknown]
